FAERS Safety Report 5849503-3 (Version None)
Quarter: 2008Q3

REPORT INFORMATION
  Report Type: 
  Country: None (occurrence: None)
  Receive Date: 20080819
  Receipt Date: 20080807
  Transmission Date: 20090109
  Serious: Yes (Hospitalization)
  Sender: FDA-Public Use
  Company Number: A0699076A

PATIENT
  Sex: Male
  Weight: 2.2 kg

DRUGS (7)
  1. PAXIL [Suspect]
     Indication: DEPRESSION
     Dosage: 10MG PER DAY
     Dates: start: 20010306
  2. PAXIL CR [Suspect]
     Indication: DEPRESSION
  3. SYNTHROID [Concomitant]
  4. CLARITIN [Concomitant]
  5. VITAMIN TAB [Concomitant]
  6. ALLEGRA [Concomitant]
  7. ALLERGY SHOT [Concomitant]

REACTIONS (5)
  - CARDIAC MURMUR [None]
  - DRUG EXPOSURE DURING PREGNANCY [None]
  - HYPERBILIRUBINAEMIA [None]
  - JAUNDICE [None]
  - PNEUMOTHORAX [None]
